FAERS Safety Report 21892540 (Version 1)
Quarter: 2023Q1

REPORT INFORMATION
  Report Type: Spontaneous
  Country: US (occurrence: US)
  Receive Date: 20230120
  Receipt Date: 20230120
  Transmission Date: 20230418
  Serious: Yes (Other)
  Sender: FDA-Public Use
  Company Number: US-ENDO PHARMACEUTICALS INC-2022-004816

PATIENT
  Sex: Female

DRUGS (1)
  1. PERCOCET [Suspect]
     Active Substance: ACETAMINOPHEN\OXYCODONE HYDROCHLORIDE
     Indication: Post lumbar puncture syndrome
     Dosage: UNK UNKNOWN, Q4H
     Route: 065

REACTIONS (2)
  - Drug dependence [Recovered/Resolved]
  - Drug diversion [Recovered/Resolved]
